FAERS Safety Report 5587575-4 (Version None)
Quarter: 2008Q1

REPORT INFORMATION
  Report Type: 
  Country: None (occurrence: None)
  Receive Date: 20080108
  Receipt Date: 20071226
  Transmission Date: 20080703
  Serious: Yes (Hospitalization)
  Sender: FDA-Public Use
  Company Number: WAES 0712USA02581

PATIENT
  Age: 73 Year
  Sex: Female
  Weight: 48.0813 kg

DRUGS (11)
  1. DECADRON [Suspect]
     Indication: APHASIA
     Dosage: 4 MG/BID/ PO
     Route: 048
     Dates: start: 20070520
  2. DECADRON [Suspect]
     Indication: APHASIA
     Dosage: 2 MG/BID/PO
     Route: 048
     Dates: start: 20070705
  3. DECADRON [Suspect]
     Indication: APHASIA
     Dosage: 2 MG/DAILY/ PO
     Route: 048
     Dates: start: 20070720
  4. DECADRON [Suspect]
     Indication: APHASIA
     Dosage: 4 MG/ DAILY/ PO
     Route: 048
     Dates: start: 20070813
  5. DECADRON [Suspect]
     Indication: APHASIA
     Dosage: 2 MG/DAILY/ PO
     Route: 048
     Dates: start: 20070927
  6. DECADRON [Suspect]
     Indication: APHASIA
     Dosage: 2 MG/BID/PO
     Route: 048
     Dates: start: 20071112
  7. TEMOZOLOMIDE [Suspect]
     Indication: GLIOBLASTOMA MULTIFORME
     Dosage: 75 MG/M[2] /DAILY/PO
     Route: 048
     Dates: start: 20070523
  8. TEMOZOLOMIDE [Suspect]
     Indication: GLIOBLASTOMA MULTIFORME
     Dosage: 75 MG/M[2]/ DAILY/ PO
     Route: 048
     Dates: start: 20070802, end: 20070806
  9. TEMOZOLOMIDE [Suspect]
     Indication: GLIOBLASTOMA MULTIFORME
     Dosage: 75 MG/M[2] /DAILY/PO
     Route: 048
     Dates: start: 20070830, end: 20070903
  10. TEMOZOLOMIDE [Suspect]
     Indication: GLIOBLASTOMA MULTIFORME
     Dosage: 75 MG/M [2] /DAILY/PO
     Route: 048
     Dates: start: 20070927, end: 20071001
  11. TEMOZOLOMIDE [Suspect]
     Indication: GLIOBLASTOMA MULTIFORME
     Dosage: 150 MG/M[2] /DAILY/PO
     Route: 048
     Dates: start: 20071025, end: 20071029

REACTIONS (9)
  - BRAIN OEDEMA [None]
  - CENTRAL NERVOUS SYSTEM NECROSIS [None]
  - CONFUSIONAL STATE [None]
  - CONTUSION [None]
  - FALL [None]
  - GLIOBLASTOMA MULTIFORME [None]
  - MALIGNANT NEOPLASM PROGRESSION [None]
  - MUSCULAR WEAKNESS [None]
  - SPEECH DISORDER [None]
